FAERS Safety Report 8520835-3 (Version None)
Quarter: 2012Q3

REPORT INFORMATION
  Report Type: 
  Country: None (occurrence: None)
  Receive Date: 20120719
  Receipt Date: 20120717
  Transmission Date: 20120928
  Serious: Yes (Other)
  Sender: FDA-Public Use
  Company Number: DE-PFIZER INC-2011244479

PATIENT
  Age: 77 Year
  Sex: Male
  Weight: 78 kg

DRUGS (5)
  1. AMLODIPINE BESYLATE [Suspect]
     Indication: CORONARY ARTERY DISEASE
     Dosage: 10 UNK 1X/DAY
     Dates: start: 20110502
  2. ATORVASTATIN CALCIUM [Concomitant]
     Indication: HYPERCHOLESTEROLAEMIA
     Dosage: 10 UNK 1X/DAY
  3. DURANIFIN - SLOW RELEASE [Concomitant]
     Indication: HYPERTENSION
     Dosage: 40 UNK, 1X/DAY
  4. AMLODIPINE BESYLATE [Suspect]
     Indication: HYPERTENSION
  5. LOSARTAN [Concomitant]
     Indication: HYPERTENSION
     Dosage: 100 UNK, 1X/DAY

REACTIONS (1)
  - BLOOD CREATINE PHOSPHOKINASE INCREASED [None]
